FAERS Safety Report 9666537 (Version 1)
Quarter: 2013Q4

REPORT INFORMATION
  Report Type: Spontaneous
  Country: US (occurrence: US)
  Receive Date: 20131104
  Receipt Date: 20131104
  Transmission Date: 20140711
  Serious: No
  Sender: FDA-Public Use
  Company Number: US-BIOGENIDEC-2013BI086532

PATIENT
  Sex: Male

DRUGS (4)
  1. TECFIDERA [Suspect]
     Indication: MULTIPLE SCLEROSIS
     Route: 048
     Dates: start: 20130710
  2. VITAMIN D2 [Concomitant]
  3. ATENOLOL [Concomitant]
  4. AMPYRA [Concomitant]

REACTIONS (1)
  - Decreased immune responsiveness [Unknown]
